FAERS Safety Report 5078301-6 (Version None)
Quarter: 2006Q3

REPORT INFORMATION
  Report Type: 
  Country: None (occurrence: None)
  Receive Date: 20060811
  Receipt Date: 20060713
  Transmission Date: 20061208
  Serious: Yes (Disabling, Other)
  Sender: FDA-Public Use
  Company Number: US-MERCK-0607USA02619

PATIENT
  Age: 74 Year
  Sex: Male

DRUGS (7)
  1. ZETIA [Suspect]
     Indication: BLOOD CHOLESTEROL INCREASED
     Route: 048
     Dates: start: 20040101
  2. ASPIRIN [Concomitant]
     Route: 048
  3. ATENOLOL [Concomitant]
     Route: 048
  4. PROSCAR [Concomitant]
     Route: 048
  5. ZOCOR [Suspect]
     Route: 048
     Dates: start: 20040101, end: 20060601
  6. CELEBREX [Concomitant]
     Route: 048
  7. ADVIL [Concomitant]
     Route: 048

REACTIONS (4)
  - MUSCULAR WEAKNESS [None]
  - MUSCULOSKELETAL DISCOMFORT [None]
  - MYALGIA [None]
  - SPINAL COLUMN STENOSIS [None]
